FAERS Safety Report 12270512 (Version 1)
Quarter: 2016Q2

REPORT INFORMATION
  Report Type: Spontaneous
  Country: US (occurrence: US)
  Receive Date: 20160415
  Receipt Date: 20160415
  Transmission Date: 20160815
  Serious: No
  Sender: FDA-Public Use
  Company Number: US-BAYER-2016-071819

PATIENT
  Sex: Female

DRUGS (2)
  1. AZITHROMYCIN ANHYDROUS. [Concomitant]
     Active Substance: AZITHROMYCIN ANHYDROUS
  2. CLARITIN [Suspect]
     Active Substance: LORATADINE
     Indication: COUGH
     Dosage: UNK

REACTIONS (2)
  - Blood pressure increased [None]
  - Off label use [None]
